FAERS Safety Report 8282867-2 (Version None)
Quarter: 2012Q2

REPORT INFORMATION
  Report Type: 
  Country: None (occurrence: None)
  Receive Date: 20120413
  Receipt Date: 20120409
  Transmission Date: 20120825
  Serious: Yes (Other)
  Sender: FDA-Public Use
  Company Number: US-UCBSA-054985

PATIENT
  Age: 65 Year
  Sex: Female

DRUGS (1)
  1. CIMZIA [Suspect]
     Route: 058
     Dates: start: 20120221

REACTIONS (6)
  - LETHARGY [None]
  - OEDEMA PERIPHERAL [None]
  - PYREXIA [None]
  - WEIGHT DECREASED [None]
  - INFLAMMATION [None]
  - HYPERSOMNIA [None]
